FAERS Safety Report 4960158-2 (Version None)
Quarter: 2006Q1

REPORT INFORMATION
  Report Type: 
  Country: None (occurrence: None)
  Receive Date: 20060331
  Receipt Date: 20060309
  Transmission Date: 20060701
  Serious: Yes (Hospitalization)
  Sender: FDA-Public Use
  Company Number: DE-ABBOTT-06P-062-0327432-00

PATIENT
  Sex: Female

DRUGS (7)
  1. HUMIRA [Suspect]
     Indication: RHEUMATOID ARTHRITIS
     Route: 058
     Dates: start: 20040108, end: 20060125
  2. METOPROLOL [Concomitant]
     Indication: HYPERTENSION
     Dates: start: 20040101
  3. CANDESARTAN CILEXETIL [Concomitant]
     Indication: HYPERTENSION
     Dates: start: 20020101
  4. ESOMEPRAZOLE [Concomitant]
     Indication: GASTROOESOPHAGEAL REFLUX DISEASE
     Dates: start: 20000901
  5. LINOLA-FETT [Concomitant]
     Indication: DRY SKIN
     Dosage: APPROXIMATELY 3 CM
     Dates: start: 20040101
  6. DEXPANTHENOL [Concomitant]
     Indication: NASAL DRYNESS
     Dosage: APPROXIMATELY 0.5CM
     Dates: start: 20050815
  7. COMMERCIAL HUMIRA [Concomitant]
     Indication: RHEUMATOID ARTHRITIS
     Route: 058
     Dates: start: 20031010

REACTIONS (1)
  - GAMMA-GLUTAMYLTRANSFERASE INCREASED [None]
